FAERS Safety Report 8992133 (Version 1)
Quarter: 2012Q4

REPORT INFORMATION
  Report Type: 
  Country: FI (occurrence: FI)
  Receive Date: 20121231
  Receipt Date: 20121231
  Transmission Date: 20130627
  Serious: Yes (Death, Hospitalization)
  Sender: FDA-Public Use
  Company Number: FI-ROCHE-1173371

PATIENT
  Age: 54 Year
  Sex: Male

DRUGS (16)
  1. ROACTEMRA [Suspect]
     Route: 065
  2. ROACTEMRA [Suspect]
     Route: 065
     Dates: end: 20120816
  3. FURESIS [Concomitant]
     Route: 048
  4. DIOVAN [Concomitant]
     Route: 048
  5. LIPCUT [Concomitant]
     Route: 048
  6. PRIMASPAN [Concomitant]
     Route: 048
  7. HUMALOG MIX25 [Concomitant]
     Indication: TYPE 1 DIABETES MELLITUS
     Dosage: 100 U/ml
     Route: 065
  8. PREDNISOLON [Concomitant]
     Indication: RHEUMATOID ARTHRITIS
     Route: 048
  9. MYOCRISIN [Concomitant]
     Indication: RHEUMATOID ARTHRITIS
     Dosage: 100 mg/ml
     Route: 030
  10. TEGRETOL RETARD [Concomitant]
     Indication: EPILEPSY
     Route: 048
  11. DEPRAKINE [Concomitant]
     Indication: EPILEPSY
     Route: 048
  12. CIPROFLOXACIN HYDROCHLORIDE/TINIDAZOLE [Concomitant]
     Route: 048
  13. KALCIPOS-D [Concomitant]
     Dosage: 500 mg/400 IU
     Route: 048
  14. RITUXIMAB [Concomitant]
     Route: 065
     Dates: start: 201006
  15. RITUXIMAB [Concomitant]
     Route: 065
     Dates: start: 201007
  16. ROACTEMRA [Suspect]
     Indication: RHEUMATOID ARTHRITIS
     Route: 042
     Dates: start: 20100930, end: 20120816

REACTIONS (6)
  - Leukopenia [Fatal]
  - Neutropenia [Fatal]
  - Erysipelas [Unknown]
  - Necrotising fasciitis [Fatal]
  - Sepsis [Fatal]
  - Septic shock [Recovered/Resolved]
